FAERS Safety Report 18946916 (Version 1)
Quarter: 2021Q1

REPORT INFORMATION
  Report Type: Spontaneous
  Country: US (occurrence: US)
  Receive Date: 20210226
  Receipt Date: 20210226
  Transmission Date: 20210420
  Serious: No
  Sender: FDA-Public Use
  Company Number: US-ROCHE-2551398

PATIENT
  Sex: Male

DRUGS (1)
  1. XOLAIR [Suspect]
     Active Substance: OMALIZUMAB
     Indication: PRODUCT USED FOR UNKNOWN INDICATION
     Dosage: SOL 150 MG INJECTION
     Route: 058
     Dates: start: 20150101

REACTIONS (3)
  - Drug hypersensitivity [Unknown]
  - Rubber sensitivity [Unknown]
  - Product quality issue [Unknown]
